FAERS Safety Report 18608492 (Version 1)
Quarter: 2020Q4

REPORT INFORMATION
  Report Type: Spontaneous
  Country: FR (occurrence: FR)
  Receive Date: 20201212
  Receipt Date: 20201212
  Transmission Date: 20210114
  Serious: Yes (Hospitalization)
  Sender: FDA-Public Use
  Company Number: ALC2020FR009918

PATIENT

DRUGS (1)
  1. ATROPINE ALCON 0,5% COLLYRE [Suspect]
     Active Substance: ATROPINE
     Indication: OPHTHALMOLOGICAL EXAMINATION
     Dosage: 2 DRP, QD
     Route: 047
     Dates: start: 20200301, end: 20200302

REACTIONS (4)
  - Convulsions local [Recovered/Resolved]
  - Hypotonia [Recovered/Resolved]
  - Incorrect dose administered [Recovered/Resolved]
  - Mydriasis [Recovered/Resolved]

NARRATIVE: CASE EVENT DATE: 20200301
